FAERS Safety Report 4381291-2 (Version None)
Quarter: 2004Q2

REPORT INFORMATION
  Report Type: 
  Country: None (occurrence: None)
  Receive Date: 20040617
  Receipt Date: 20040617
  Transmission Date: 20050107
  Serious: No
  Sender: FDA-Public Use
  Company Number: None

PATIENT

DRUGS (5)
  1. VANCOMYCIN [Suspect]
     Indication: FOOT AMPUTATION
     Dosage: 1 GM Q12 IV
     Route: 042
     Dates: start: 20040519
  2. VANCOMYCIN [Suspect]
     Indication: STAPHYLOCOCCAL INFECTION
     Dosage: 1 GM Q12 IV
     Route: 042
     Dates: start: 20040519
  3. DSS [Concomitant]
  4. METFORMIN HCL [Concomitant]
  5. NICOTINE [Concomitant]

REACTIONS (1)
  - RED MAN SYNDROME [None]
